FAERS Safety Report 21983395 (Version 1)
Quarter: 2023Q1

REPORT INFORMATION
  Report Type: Spontaneous
  Country: US (occurrence: US)
  Receive Date: 20230213
  Receipt Date: 20230213
  Transmission Date: 20230417
  Serious: Yes (Other)
  Sender: FDA-Public Use
  Company Number: US-OTSUKA-2022_038549

PATIENT

DRUGS (10)
  1. BUSULFAN [Suspect]
     Active Substance: BUSULFAN
     Indication: Allogenic stem cell transplantation
     Dosage: 0.8 MG/KG/DOSE EVERY 6 HOURS
     Route: 065
  2. CLOFARABINE [Suspect]
     Active Substance: CLOFARABINE
     Indication: Allogenic stem cell transplantation
     Dosage: 40 MG/M2/DAY ON DAYS -9 AND -8
     Route: 065
  3. CYTARABINE [Suspect]
     Active Substance: CYTARABINE
     Indication: Allogenic stem cell transplantation
     Dosage: 1 G/M2/DAY ON DAY -9 AND -8
     Route: 065
  4. PLERIXAFOR [Suspect]
     Active Substance: PLERIXAFOR
     Indication: Allogenic stem cell transplantation
     Dosage: 0.24 MG/KG/DAY ON DAYS -7 AND -6
     Route: 065
  5. CYCLOPHOSPHAMIDE [Suspect]
     Active Substance: CYCLOPHOSPHAMIDE
     Indication: Allogenic stem cell transplantation
     Dosage: 15 MG/KG/DAY ON DAY -5
     Route: 065
  6. CYCLOPHOSPHAMIDE [Suspect]
     Active Substance: CYCLOPHOSPHAMIDE
     Indication: Graft versus host disease
     Dosage: 50 MG/KG/DAY ON DAY 4
     Route: 065
  7. LAPINE T-LYMPHOCYTE IMMUNE GLOBULIN [Suspect]
     Active Substance: LAPINE T-LYMPHOCYTE IMMUNE GLOBULIN
     Indication: Allogenic stem cell transplantation
     Dosage: 1 MG/KG/DAY ON DAYS -4 AND 3
     Route: 065
  8. LAPINE T-LYMPHOCYTE IMMUNE GLOBULIN [Suspect]
     Active Substance: LAPINE T-LYMPHOCYTE IMMUNE GLOBULIN
     Dosage: 3 MG/KG/D ON DAYS -3, -2, AND -1
     Route: 065
  9. TACROLIMUS [Suspect]
     Active Substance: TACROLIMUS
     Indication: Graft versus host disease
     Dosage: UNK
     Route: 065
  10. MYCOPHENOLATE MOFETIL [Suspect]
     Active Substance: MYCOPHENOLATE MOFETIL
     Indication: Graft versus host disease
     Dosage: UNK
     Route: 065

REACTIONS (1)
  - Seizure [Unknown]
